FAERS Safety Report 18948207 (Version 2)
Quarter: 2021Q2

REPORT INFORMATION
  Report Type: Spontaneous
  Country: US (occurrence: US)
  Receive Date: 20210226
  Receipt Date: 20210622
  Transmission Date: 20210717
  Serious: No
  Sender: FDA-Public Use
  Company Number: US-009507513-2102USA006674

PATIENT
  Age: 61 Year
  Sex: Male
  Weight: 94.7 kg

DRUGS (9)
  1. CUBICIN [Suspect]
     Active Substance: DAPTOMYCIN
     Indication: ENTEROCOCCAL INFECTION
     Dosage: 1,100 MG (12 MG/KG) EVERY 24 HOURS
  2. TIGECYCLINE. [Concomitant]
     Active Substance: TIGECYCLINE
  3. MEROPENEM. [Concomitant]
     Active Substance: MEROPENEM
     Dosage: 2 GRAM, EVERY 8 HOURS
     Route: 042
  4. DALFOPRISTIN;QUINUPRISTIN [Concomitant]
     Dosage: 750 MILLIGRAM, EVERY 8 HOURS
     Route: 042
  5. STROMECTOL [Suspect]
     Active Substance: IVERMECTIN
     Indication: STRONGYLOIDIASIS
  6. VANCOMYCIN [Concomitant]
     Active Substance: VANCOMYCIN
     Dosage: 1.5 G (16 MG/KG) EVERY 12 HOURS
     Route: 042
  7. CUBICIN [Suspect]
     Active Substance: DAPTOMYCIN
     Indication: MENINGITIS ENTEROCOCCAL
  8. LINEZOLID. [Concomitant]
     Active Substance: LINEZOLID
  9. STROMECTOL [Suspect]
     Active Substance: IVERMECTIN
     Indication: MENINGITIS ENTEROCOCCAL
     Dosage: 18 MG (200 MCG/KG), DAILY
     Route: 048

REACTIONS (1)
  - Off label use [Unknown]
